FAERS Safety Report 23842633 (Version 1)
Quarter: 2024Q2

REPORT INFORMATION
  Report Type: Spontaneous
  Country: CA (occurrence: CA)
  Receive Date: 20240510
  Receipt Date: 20240510
  Transmission Date: 20240717
  Serious: Yes (Disabling, Other)
  Sender: FDA-Public Use
  Company Number: CA-TEVA-VS-3197104

PATIENT
  Age: 29 Year
  Sex: Female

DRUGS (1)
  1. VORICONAZOLE [Suspect]
     Active Substance: VORICONAZOLE
     Indication: Fungal infection
     Route: 048

REACTIONS (2)
  - Ocular toxicity [Unknown]
  - Vision blurred [Unknown]
